FAERS Safety Report 23992929 (Version 1)
Quarter: 2024Q2

REPORT INFORMATION
  Report Type: Spontaneous
  Country: DE (occurrence: DE)
  Receive Date: 20240620
  Receipt Date: 20240620
  Transmission Date: 20240716
  Serious: Yes (Death, Hospitalization, Other)
  Sender: FDA-Public Use
  Company Number: DE-PBT-009439

PATIENT
  Age: 4 Month
  Sex: Male

DRUGS (2)
  1. TACROLIMUS [Suspect]
     Active Substance: TACROLIMUS
     Indication: Prophylaxis against transplant rejection
     Route: 065
  2. BASILIXIMAB [Suspect]
     Active Substance: BASILIXIMAB
     Indication: Prophylaxis against transplant rejection
     Dosage: 1 DOSE
     Route: 065

REACTIONS (8)
  - Disseminated intravascular coagulation [Fatal]
  - Septic shock [Fatal]
  - Systemic mycosis [Fatal]
  - Necrosis [Unknown]
  - Intestinal haemorrhage [Unknown]
  - Aspergillus infection [Unknown]
  - Mucosal haemorrhage [Unknown]
  - Fungal infection [Unknown]
